FAERS Safety Report 5772462-9 (Version None)
Quarter: 2008Q2

REPORT INFORMATION
  Report Type: 
  Country: None (occurrence: None)
  Receive Date: 20080613
  Receipt Date: 20080604
  Transmission Date: 20081010
  Serious: Yes (Hospitalization)
  Sender: FDA-Public Use
  Company Number: FR-ROCHE-548725

PATIENT
  Sex: Female

DRUGS (2)
  1. BONIVA [Suspect]
     Indication: OSTEOPOROSIS
     Route: 048
     Dates: start: 20070702, end: 20080102
  2. CALCIPRAT [Concomitant]
     Indication: OSTEOPOROSIS
     Dosage: DOSING REGIMEN: ONE DOSE DAILY
     Route: 048

REACTIONS (7)
  - ABDOMINAL PAIN UPPER [None]
  - CHOLESTASIS [None]
  - DYSPEPSIA [None]
  - FACE OEDEMA [None]
  - GASTROENTERITIS EOSINOPHILIC [None]
  - LIP OEDEMA [None]
  - URTICARIA [None]
